FAERS Safety Report 19918424 (Version 1)
Quarter: 2021Q4

REPORT INFORMATION
  Report Type: Spontaneous
  Country: CN (occurrence: CN)
  Receive Date: 20211004
  Receipt Date: 20211004
  Transmission Date: 20220303
  Serious: Yes (Other)
  Sender: FDA-Public Use
  Company Number: CN-PFIZER INC-202101265983

PATIENT
  Age: 47 Year
  Sex: Female
  Weight: 60 kg

DRUGS (2)
  1. CYTARABINE [Suspect]
     Active Substance: CYTARABINE
     Indication: Chemotherapy
     Dosage: 75.0 MG, 1X/DAY
     Route: 041
     Dates: start: 20210904, end: 20210910
  2. CYTARABINE [Suspect]
     Active Substance: CYTARABINE
     Indication: Leukaemia

REACTIONS (2)
  - Conjunctival hyperaemia [Recovered/Resolved]
  - Pruritus [Recovered/Resolved]

NARRATIVE: CASE EVENT DATE: 20210904
